FAERS Safety Report 5586944-6 (Version None)
Quarter: 2007Q4

REPORT INFORMATION
  Report Type: 
  Country: None (occurrence: None)
  Receive Date: 20071205
  Receipt Date: 20070319
  Transmission Date: 20080405
  Serious: Yes (Other)
  Sender: FDA-Public Use
  Company Number: 2007-01284

PATIENT
  Age: 70 Year
  Sex: Female

DRUGS (1)
  1. LORAZEPAM [Suspect]
     Indication: PANIC ATTACK
     Dosage: 1 TABLET, DAILY, ORAL
     Route: 048
     Dates: start: 20010101

REACTIONS (4)
  - AGITATION [None]
  - BALANCE DISORDER [None]
  - DISORIENTATION [None]
  - DRUG DEPENDENCE [None]
